FAERS Safety Report 11030359 (Version 1)
Quarter: 2015Q2

REPORT INFORMATION
  Report Type: Spontaneous
  Country: US (occurrence: None)
  Receive Date: 20150414
  Receipt Date: 20150414
  Transmission Date: 20150821
  Serious: Yes (Hospitalization)
  Sender: FDA-Public Use
  Company Number: None

PATIENT
  Age: 49 Year
  Sex: Male
  Weight: 117.5 kg

DRUGS (2)
  1. FONDAPARINUX [Suspect]
     Active Substance: FONDAPARINUX
     Indication: SURGERY
     Dosage: ML, SQ
     Route: 058
     Dates: start: 20150128, end: 20150223
  2. FONDAPARINUX [Suspect]
     Active Substance: FONDAPARINUX
     Indication: THROMBOSIS PROPHYLAXIS
     Dosage: ML, SQ
     Route: 058
     Dates: start: 20150128, end: 20150223

REACTIONS (1)
  - Haematoma [None]

NARRATIVE: CASE EVENT DATE: 20150223
